FAERS Safety Report 13705780 (Version 2)
Quarter: 2017Q3

REPORT INFORMATION
  Report Type: Spontaneous
  Country: US (occurrence: US)
  Receive Date: 20170630
  Receipt Date: 20170728
  Transmission Date: 20171127
  Serious: Yes (Hospitalization)
  Sender: FDA-Public Use
  Company Number: US-JNJFOC-20170624968

PATIENT
  Age: 67 Year
  Sex: Female
  Weight: 89.81 kg

DRUGS (2)
  1. REMICADE [Suspect]
     Active Substance: INFLIXIMAB
     Indication: CROHN^S DISEASE
     Route: 042
     Dates: start: 2017, end: 20170621
  2. REMICADE [Suspect]
     Active Substance: INFLIXIMAB
     Indication: CROHN^S DISEASE
     Route: 042
     Dates: end: 2002

REACTIONS (5)
  - Gastrointestinal erosion [Unknown]
  - Diarrhoea [Unknown]
  - Infection [Unknown]
  - Abdominal pain [Recovered/Resolved]
  - Polymyositis [Recovered/Resolved]

NARRATIVE: CASE EVENT DATE: 201706
